FAERS Safety Report 7554321-4 (Version None)
Quarter: 2011Q2

REPORT INFORMATION
  Report Type: 
  Country: None (occurrence: None)
  Receive Date: 20110617
  Receipt Date: 20110609
  Transmission Date: 20111010
  Serious: Yes (Hospitalization, Disabling, Other)
  Sender: FDA-Public Use
  Company Number: US-ABBOTT-11P-163-0731379-00

PATIENT
  Sex: Male
  Weight: 106.69 kg

DRUGS (8)
  1. METOPROLOL TARTRATE [Concomitant]
     Indication: HYPERTENSION
     Route: 048
     Dates: start: 20050101
  2. HYDROCODONE [Concomitant]
     Indication: ARTHRALGIA
     Dosage: 500MG TID PRN
     Route: 048
  3. HUMIRA [Suspect]
     Indication: RHEUMATOID ARTHRITIS
     Route: 058
     Dates: start: 20100901, end: 20110405
  4. PREDNISONE [Concomitant]
     Indication: RHEUMATOID ARTHRITIS
     Route: 048
  5. SERTRALINE HYDROCHLORIDE [Concomitant]
     Indication: DEPRESSION
     Route: 048
  6. HUMIRA [Suspect]
     Route: 058
     Dates: start: 20110419, end: 20110526
  7. PROAIR HFA [Concomitant]
     Indication: CHRONIC OBSTRUCTIVE PULMONARY DISEASE
     Dosage: 1 PUFF PRN SHORTNESS OF BREATH
  8. TESTOSTERONE [Concomitant]
     Indication: BLOOD TESTOSTERONE DECREASED
     Dates: start: 20020101

REACTIONS (8)
  - CARDIAC MURMUR [None]
  - BLINDNESS UNILATERAL [None]
  - ALTERED VISUAL DEPTH PERCEPTION [None]
  - DEEP VEIN THROMBOSIS [None]
  - EYE INFECTION FUNGAL [None]
  - IMPAIRED DRIVING ABILITY [None]
  - PULMONARY ARTERY ANEURYSM [None]
  - OEDEMA PERIPHERAL [None]
